FAERS Safety Report 12302522 (Version 1)
Quarter: 2016Q2

REPORT INFORMATION
  Report Type: Spontaneous
  Country: US (occurrence: US)
  Receive Date: 20160425
  Receipt Date: 20160425
  Transmission Date: 20160815
  Serious: No
  Sender: FDA-Public Use
  Company Number: US-SA-2015SA069921

PATIENT
  Age: 57 Year
  Sex: Female

DRUGS (1)
  1. LOVENOX [Suspect]
     Active Substance: ENOXAPARIN SODIUM
     Indication: PROPHYLAXIS
     Dosage: UTR
     Route: 065
     Dates: start: 20150520

REACTIONS (2)
  - Drug administered at inappropriate site [Unknown]
  - Joint swelling [Unknown]
